FAERS Safety Report 7452241-7 (Version None)
Quarter: 2011Q2

REPORT INFORMATION
  Report Type: 
  Country: None (occurrence: None)
  Receive Date: 20110502
  Receipt Date: 20110428
  Transmission Date: 20111010
  Serious: Yes (Congenital Anomaly, Other)
  Sender: FDA-Public Use
  Company Number: US-PFIZER INC-2007095363

PATIENT
  Sex: Male
  Weight: 4 kg

DRUGS (10)
  1. ZOLOFT [Suspect]
     Indication: ANXIETY
  2. PREVACID [Concomitant]
     Indication: GASTROOESOPHAGEAL REFLUX DISEASE
     Route: 064
  3. REGULAR INSULIN [Concomitant]
     Indication: DIABETES MELLITUS
     Route: 064
  4. STADOL [Concomitant]
     Dosage: 1 MG, UNK
     Route: 064
     Dates: start: 20030423
  5. PRILOSEC [Concomitant]
     Indication: GASTROOESOPHAGEAL REFLUX DISEASE
     Route: 064
  6. ZOLOFT [Suspect]
     Indication: DEPRESSION
     Dosage: 100 MG, 1X/DAY
     Route: 064
     Dates: start: 19990101
  7. PRENATAL VITAMINS [Concomitant]
     Route: 064
  8. XANAX [Concomitant]
     Indication: DEPRESSION
     Dosage: EVERY 8 HOURS AS NEEDED
     Route: 064
  9. NPH INSULIN [Concomitant]
     Indication: DIABETES MELLITUS
     Route: 064
  10. FERROUS SULFATE TAB [Concomitant]
     Indication: IRON DEFICIENCY
     Route: 064

REACTIONS (10)
  - RESPIRATORY DISTRESS [None]
  - VIRAL INFECTION [None]
  - TACHYPNOEA [None]
  - HYPOXIA [None]
  - VASOCONSTRICTION [None]
  - PNEUMONIA BACTERIAL [None]
  - DEHYDRATION [None]
  - DRUG EXPOSURE DURING PREGNANCY [None]
  - NEONATAL ASPIRATION [None]
  - AORTIC DISORDER [None]
